FAERS Safety Report 16575308 (Version 2)
Quarter: 2019Q3

REPORT INFORMATION
  Report Type: Spontaneous
  Country: US (occurrence: US)
  Receive Date: 20190716
  Receipt Date: 20190826
  Transmission Date: 20191004
  Serious: Yes (Hospitalization, Congenital Anomaly, Other)
  Sender: FDA-Public Use
  Company Number: US-ABBVIE-19K-163-2850534-00

PATIENT
  Sex: Female
  Weight: 7.2 kg

DRUGS (3)
  1. HUMIRA [Suspect]
     Active Substance: ADALIMUMAB
     Indication: MATERNAL EXPOSURE TIMING UNSPECIFIED
     Route: 064
  2. HUMIRA [Suspect]
     Active Substance: ADALIMUMAB
     Route: 063
  3. BACLOFEN. [Concomitant]
     Active Substance: BACLOFEN
     Indication: PRODUCT USED FOR UNKNOWN INDICATION

REACTIONS (16)
  - Developmental delay [Not Recovered/Not Resolved]
  - Visual tracking test abnormal [Unknown]
  - Tremor [Unknown]
  - Deafness [Not Recovered/Not Resolved]
  - Kernicterus [Not Recovered/Not Resolved]
  - Jaundice neonatal [Not Recovered/Not Resolved]
  - Haemophilus infection [Recovered/Resolved]
  - Escherichia urinary tract infection [Recovered/Resolved]
  - Hypotonia [Unknown]
  - Exposure via breast milk [Unknown]
  - Acoustic stimulation tests abnormal [Not Recovered/Not Resolved]
  - Kernicterus [Unknown]
  - Tracheitis [Recovered/Resolved]
  - Blood bilirubin increased [Recovered/Resolved]
  - Athetosis [Unknown]
  - Foetal exposure during pregnancy [Unknown]

NARRATIVE: CASE EVENT DATE: 201812
